FAERS Safety Report 19024840 (Version 1)
Quarter: 2021Q1

REPORT INFORMATION
  Report Type: Spontaneous
  Country: DE (occurrence: DE)
  Receive Date: 20210318
  Receipt Date: 20210318
  Transmission Date: 20210420
  Serious: Yes (Life-Threatening, Hospitalization)
  Sender: FDA-Public Use
  Company Number: DE-TEVA-2021-DE-1890553

PATIENT
  Age: 57 Year
  Sex: Female

DRUGS (6)
  1. AMLODIPINE [Suspect]
     Active Substance: AMLODIPINE BESYLATE
     Indication: SUICIDE ATTEMPT
     Route: 048
  2. VASOPRESSIN. [Suspect]
     Active Substance: VASOPRESSIN
     Indication: VASOPLEGIA SYNDROME
     Dosage: 2.3 U/H
     Route: 065
  3. NOREPINEPHRINE. [Suspect]
     Active Substance: NOREPINEPHRINE
     Indication: VASOPLEGIA SYNDROME
     Route: 065
  4. EPINEPHRINE. [Suspect]
     Active Substance: EPINEPHRINE
     Indication: VASOPLEGIA SYNDROME
     Route: 065
  5. GLUCAGON. [Suspect]
     Active Substance: GLUCAGON
     Indication: TOXICITY TO VARIOUS AGENTS
     Route: 065
  6. DOBUTAMINE [Suspect]
     Active Substance: DOBUTAMINE HYDROCHLORIDE
     Indication: VASOPLEGIA SYNDROME
     Route: 065

REACTIONS (7)
  - Hypotension [Unknown]
  - Toxicity to various agents [Unknown]
  - Acute respiratory failure [Unknown]
  - Suicide attempt [Unknown]
  - Intentional overdose [Unknown]
  - Haemodynamic instability [Unknown]
  - Vasoplegia syndrome [Unknown]
